FAERS Safety Report 6278295-1 (Version None)
Quarter: 2009Q3

REPORT INFORMATION
  Report Type: 
  Country: None (occurrence: None)
  Receive Date: 20090720
  Receipt Date: 20090720
  Transmission Date: 20100115
  Serious: Yes (Other)
  Sender: FDA-Public Use
  Company Number: None

PATIENT
  Age: 53 Year
  Sex: Male
  Weight: 87.0906 kg

DRUGS (3)
  1. CITALOPRAM HYDROBROMIDE [Suspect]
     Indication: DEPRESSION
     Dosage: 20 MG ONCE EVERU DAY PO
     Route: 048
     Dates: start: 20081130, end: 20090710
  2. LISINOPRIL [Concomitant]
  3. ADVAIR 250/50 DISKUS [Concomitant]

REACTIONS (2)
  - RIB FRACTURE [None]
  - SNEEZING [None]
